FAERS Safety Report 25483398 (Version 2)
Quarter: 2025Q3

REPORT INFORMATION
  Report Type: Spontaneous
  Country: US (occurrence: US)
  Receive Date: 20250626
  Receipt Date: 20250925
  Transmission Date: 20251020
  Serious: No
  Sender: RECKITT BENCKISER
  Company Number: US-Indivior Limited-INDV-163678-2025

PATIENT
  Sex: Male

DRUGS (1)
  1. OPVEE [Suspect]
     Active Substance: NALMEFENE HYDROCHLORIDE
     Indication: Overdose
     Route: 045
     Dates: start: 20250523

REACTIONS (1)
  - Therapy non-responder [Unknown]

NARRATIVE: CASE EVENT DATE: 20250523
